FAERS Safety Report 8474307-5 (Version None)
Quarter: 2012Q2

REPORT INFORMATION
  Report Type: 
  Country: None (occurrence: None)
  Receive Date: 20120628
  Receipt Date: 20120622
  Transmission Date: 20120825
  Serious: Yes (Other)
  Sender: FDA-Public Use
  Company Number: US-AMGEN-USASP2010002510

PATIENT
  Age: 29 Year
  Sex: Female

DRUGS (3)
  1. ENBREL [Suspect]
     Indication: PSORIASIS
     Dosage: 50 MG, QWK
     Dates: start: 20080901, end: 20100804
  2. ENBREL [Suspect]
     Dosage: UNK
     Dates: start: 20101025
  3. ENBREL [Suspect]
     Indication: PSORIATIC ARTHROPATHY
     Dosage: 50 MG, 2 TIMES/WK
     Dates: start: 20080901

REACTIONS (19)
  - ASTHMA [None]
  - MOBILITY DECREASED [None]
  - MUSCLE TWITCHING [None]
  - BLISTER [None]
  - PSORIASIS [None]
  - BRONCHITIS [None]
  - AMNESIA [None]
  - TUBERCULOSIS [None]
  - INJECTION SITE PAIN [None]
  - LIQUID PRODUCT PHYSICAL ISSUE [None]
  - SKIN EXFOLIATION [None]
  - DIZZINESS [None]
  - TOOTHACHE [None]
  - CHOKING SENSATION [None]
  - CHRONIC OBSTRUCTIVE PULMONARY DISEASE [None]
  - MEMORY IMPAIRMENT [None]
  - DRY EYE [None]
  - ORAL DISORDER [None]
  - PNEUMONIA [None]
